FAERS Safety Report 6075654-7 (Version None)
Quarter: 2009Q1

REPORT INFORMATION
  Report Type: 
  Country: None (occurrence: None)
  Receive Date: 20090212
  Receipt Date: 20090205
  Transmission Date: 20090719
  Serious: Yes (Other)
  Sender: FDA-Public Use
  Company Number: FR-ASTRAZENECA-2009CG00312

PATIENT
  Age: 21567 Day
  Sex: Male
  Weight: 78 kg

DRUGS (2)
  1. NEXIUM [Suspect]
     Indication: OESOPHAGITIS
     Route: 048
     Dates: start: 20081231, end: 20081231
  2. NEXIUM [Suspect]
     Indication: GASTRITIS
     Route: 048
     Dates: start: 20081231, end: 20081231

REACTIONS (1)
  - ANGIOEDEMA [None]
